FAERS Safety Report 8948121 (Version 1)
Quarter: 2012Q4

REPORT INFORMATION
  Report Type: Spontaneous
  Country: US (occurrence: None)
  Receive Date: 20121203
  Receipt Date: 20121203
  Transmission Date: 20130627
  Serious: Yes (Other)
  Sender: FDA-Public Use
  Company Number: None

PATIENT
  Age: 66 Year
  Sex: Female
  Weight: 86.18 kg

DRUGS (1)
  1. ATORVASTATIN [Suspect]
     Dates: start: 20121007, end: 20121130

REACTIONS (1)
  - Product quality issue [None]
